FAERS Safety Report 18037072 (Version 1)
Quarter: 2020Q3

REPORT INFORMATION
  Report Type: Spontaneous
  Country: FR (occurrence: FR)
  Receive Date: 20200717
  Receipt Date: 20200717
  Transmission Date: 20201103
  Serious: Yes (Other)
  Sender: FDA-Public Use
  Company Number: FR-MYLANLABS-2020M1064464

PATIENT
  Age: 34 Year
  Sex: Male
  Weight: 96 kg

DRUGS (4)
  1. PROPOFOL LIPURO [Suspect]
     Active Substance: PROPOFOL
     Indication: INDUCTION OF ANAESTHESIA
     Dosage: 300 MILLIGRAM
     Route: 042
     Dates: start: 20200604, end: 20200604
  2. MYLAN REMIFENTANIL [Suspect]
     Active Substance: REMIFENTANIL
     Indication: INDUCTION OF ANAESTHESIA
     Dosage: 1 MICROGRAM/KILOGRAM
     Route: 048
     Dates: start: 20200604, end: 20200604
  3. KETAMINE RENAUDIN [Suspect]
     Active Substance: KETAMINE
     Indication: INDUCTION OF ANAESTHESIA
     Dosage: 30 MILLIGRAM
     Route: 042
     Dates: start: 20200604, end: 20200604
  4. ATRACURIUM HOSPIRA [Suspect]
     Active Substance: ATRACURIUM BESYLATE
     Indication: INDUCTION OF ANAESTHESIA
     Dosage: 500 MILLIGRAM
     Route: 042
     Dates: start: 20200604, end: 20200604

REACTIONS (3)
  - Airway complication of anaesthesia [Recovered/Resolved]
  - Anaphylactic shock [Recovered/Resolved]
  - Erythema [Recovered/Resolved]

NARRATIVE: CASE EVENT DATE: 20200604
